FAERS Safety Report 7532093-7 (Version None)
Quarter: 2011Q2

REPORT INFORMATION
  Report Type: 
  Country: None (occurrence: None)
  Receive Date: 20110608
  Receipt Date: 20110605
  Transmission Date: 20111010
  Serious: No
  Sender: FDA-Public Use
  Company Number: US-PFIZER INC-2011121517

PATIENT
  Sex: Female
  Weight: 58.957 kg

DRUGS (2)
  1. ADVIL COLD AND SINUS [Suspect]
     Dosage: 2 DF, 3X/DAY
     Dates: start: 20110603, end: 20110604
  2. ADVIL COLD AND SINUS [Suspect]
     Dosage: 2 DF, DAILY
     Route: 048
     Dates: start: 20110603, end: 20110603

REACTIONS (1)
  - DRUG INEFFECTIVE [None]
